FAERS Safety Report 17559207 (Version 1)
Quarter: 2020Q1

REPORT INFORMATION
  Report Type: Other
  Country: IT (occurrence: IT)
  Receive Date: 20200319
  Receipt Date: 20200319
  Transmission Date: 20200409
  Serious: Yes (Other)
  Sender: FDA-Public Use
  Company Number: IT-APOTEX-2020AP008827

PATIENT
  Age: 35 Year
  Sex: Male

DRUGS (2)
  1. SEREUPIN [Suspect]
     Active Substance: PAROXETINE HYDROCHLORIDE
     Indication: ANXIETY
     Dosage: UNK MG, UNK
     Route: 048
     Dates: start: 20180124
  2. ABILIFY MAINTENA [Suspect]
     Active Substance: ARIPIPRAZOLE
     Indication: SCHIZOPHRENIA
     Dosage: UNK
     Route: 030
     Dates: start: 20180124

REACTIONS (8)
  - Akathisia [Unknown]
  - Muscle rigidity [Unknown]
  - Somnolence [Unknown]
  - Tremor [Unknown]
  - Arrhythmia [Unknown]
  - Hypercholesterolaemia [Unknown]
  - Weight increased [Unknown]
  - Dyskinesia [Unknown]

NARRATIVE: CASE EVENT DATE: 20180611
